FAERS Safety Report 22038676 (Version 3)
Quarter: 2025Q1

REPORT INFORMATION
  Report Type: Report from Study
  Country: GB (occurrence: GB)
  Receive Date: 20230227
  Receipt Date: 20250131
  Transmission Date: 20250408
  Serious: Yes (Hospitalization, Other)
  Sender: KYOWA
  Company Number: GB-KYOWAKIRIN-2023BKK002834

PATIENT

DRUGS (3)
  1. BUROSUMAB [Suspect]
     Active Substance: BUROSUMAB
     Indication: Hereditary hypophosphataemic rickets
     Route: 065
  2. BUROSUMAB [Suspect]
     Active Substance: BUROSUMAB
     Route: 065
  3. BUROSUMAB [Suspect]
     Active Substance: BUROSUMAB
     Indication: Hereditary hypophosphataemic rickets
     Dosage: 35 MG, 1X/2 WEEKS
     Route: 058

REACTIONS (5)
  - Suicidal ideation [Unknown]
  - Eczema [Unknown]
  - Limb operation [Recovered/Resolved]
  - Prescription drug used without a prescription [Unknown]
  - Product use issue [Unknown]

NARRATIVE: CASE EVENT DATE: 20230201
